FAERS Safety Report 22044667 (Version 1)
Quarter: 2023Q1

REPORT INFORMATION
  Report Type: Spontaneous
  Country: US (occurrence: None)
  Receive Date: 20230227
  Receipt Date: 20230227
  Transmission Date: 20230417
  Serious: Yes (Death)
  Sender: FDA-Public Use
  Company Number: None

PATIENT
  Age: 4 Year
  Sex: Female

DRUGS (2)
  1. ESBRIET [Suspect]
     Active Substance: PIRFENIDONE
     Indication: Stem cell transplant
     Route: 048
     Dates: start: 20230103
  2. SIROLIMUS [Suspect]
     Active Substance: SIROLIMUS
     Indication: Stem cell transplant
     Dosage: FREQUENCY : EVERY OTHER DAY;?
     Route: 048
     Dates: start: 20220605

REACTIONS (1)
  - Death [None]
